FAERS Safety Report 6993880-7 (Version None)
Quarter: 2010Q3

REPORT INFORMATION
  Report Type: 
  Country: None (occurrence: None)
  Receive Date: 20100917
  Receipt Date: 20091015
  Transmission Date: 20110219
  Serious: No
  Sender: FDA-Public Use
  Company Number: US-ASTRAZENECA-2009SE20670

PATIENT
  Age: 29 Year
  Sex: Male

DRUGS (5)
  1. SEROQUEL XR [Suspect]
  2. SEROQUEL XR [Suspect]
  3. SEROQUEL XR [Suspect]
  4. LAMICTAL [Concomitant]
  5. LITHIUM CARBONATE [Concomitant]

REACTIONS (2)
  - INTENTIONAL DRUG MISUSE [None]
  - TARDIVE DYSKINESIA [None]
